FAERS Safety Report 6534156-1 (Version None)
Quarter: 2009Q4

REPORT INFORMATION
  Report Type: 
  Country: None (occurrence: None)
  Receive Date: 20091214
  Receipt Date: 20090106
  Transmission Date: 20100525
  Serious: Yes (Other)
  Sender: FDA-Public Use
  Company Number: 389434

PATIENT
  Age: 52 Year
  Sex: Female

DRUGS (3)
  1. PEGASYS [Suspect]
     Indication: HEPATITIS C
     Dosage: 1 PER WEEK
     Dates: start: 20040910, end: 20090101
  2. COPEGUS [Suspect]
     Indication: HEPATITIS C
     Dosage: 2 DOSE FORM 2 PER DAY ORAL
     Route: 048
     Dates: start: 20040910
  3. CLONAZEPAM [Concomitant]

REACTIONS (20)
  - ARTHRALGIA [None]
  - CANDIDIASIS [None]
  - CHAPPED LIPS [None]
  - DECREASED APPETITE [None]
  - DRY MOUTH [None]
  - DYSGEUSIA [None]
  - DYSPNOEA [None]
  - FATIGUE [None]
  - INSOMNIA [None]
  - JOINT LOCK [None]
  - MALAISE [None]
  - MYALGIA [None]
  - NAUSEA [None]
  - OPEN WOUND [None]
  - PAIN [None]
  - RED BLOOD CELL COUNT DECREASED [None]
  - STOMATITIS [None]
  - TREMOR [None]
  - WEIGHT DECREASED [None]
  - WHITE BLOOD CELL COUNT DECREASED [None]
